FAERS Safety Report 15344567 (Version 1)
Quarter: 2018Q3

REPORT INFORMATION
  Report Type: Spontaneous
  Country: US (occurrence: US)
  Receive Date: 20180903
  Receipt Date: 20180903
  Transmission Date: 20181010
  Serious: Yes (Disabling, Other)
  Sender: FDA-Public Use
  Company Number: US-APOTEX-2018AP019219

PATIENT
  Sex: Male

DRUGS (1)
  1. PAXIL [Suspect]
     Active Substance: PAROXETINE HYDROCHLORIDE
     Dosage: UNK
     Route: 065

REACTIONS (29)
  - Dyskinesia [Unknown]
  - Salivary gland enlargement [Unknown]
  - Feeding disorder [Unknown]
  - Dystonia [Unknown]
  - Aphasia [Unknown]
  - Stress [Unknown]
  - Neck injury [Unknown]
  - Tongue disorder [Unknown]
  - Emotional distress [Unknown]
  - Asthenia [Unknown]
  - Fall [Unknown]
  - Condition aggravated [Unknown]
  - Frustration tolerance decreased [Unknown]
  - Headache [Unknown]
  - Temporomandibular joint syndrome [Unknown]
  - Back pain [Unknown]
  - Anxiety [Unknown]
  - Regurgitation [Unknown]
  - Neck pain [Unknown]
  - Swollen tongue [Unknown]
  - Sleep disorder [Unknown]
  - Muscle spasms [Unknown]
  - Swelling [Unknown]
  - Retching [Unknown]
  - Pain [Unknown]
  - Choking [Unknown]
  - Spinal column injury [Unknown]
  - Respiration abnormal [Unknown]
  - Depressed mood [Unknown]
